FAERS Safety Report 6252914-8 (Version None)
Quarter: 2009Q3

REPORT INFORMATION
  Report Type: 
  Country: None (occurrence: None)
  Receive Date: 20090701
  Receipt Date: 20090625
  Transmission Date: 20100115
  Serious: Yes (Hospitalization, Other)
  Sender: FDA-Public Use
  Company Number: A0792321A

PATIENT
  Sex: Female
  Weight: 57 kg

DRUGS (3)
  1. LAPATINIB [Suspect]
     Dosage: 1500MG PER DAY
     Route: 048
     Dates: start: 20090421
  2. CISPLATIN [Suspect]
     Route: 042
  3. RADIOTHERAPY [Suspect]
     Route: 061

REACTIONS (2)
  - FATIGUE [None]
  - STOMATITIS [None]
